FAERS Safety Report 4954977-6 (Version None)
Quarter: 2006Q1

REPORT INFORMATION
  Report Type: 
  Country: None (occurrence: None)
  Receive Date: 20060327
  Receipt Date: 20060316
  Transmission Date: 20060701
  Serious: Yes (Hospitalization, Disabling, Other)
  Sender: FDA-Public Use
  Company Number: US-SANOFI-SYNTHELABO-A03200601513

PATIENT
  Sex: Female

DRUGS (3)
  1. ZEPHIRAN [Suspect]
     Indication: DERMABRASION
     Dosage: UNK
     Route: 061
     Dates: start: 20030421, end: 20030421
  2. MASTISOL [Suspect]
     Indication: DERMABRASION
     Dosage: UNK
     Route: 061
     Dates: start: 20030421, end: 20030421
  3. VIGILON [Suspect]
     Indication: DERMABRASION
     Dosage: UNK
     Route: 061
     Dates: start: 20030421, end: 20030421

REACTIONS (13)
  - ACTIVITIES OF DAILY LIVING IMPAIRED [None]
  - ANHEDONIA [None]
  - APNOEA [None]
  - BLISTER [None]
  - DISCOMFORT [None]
  - EMOTIONAL DISTRESS [None]
  - EYE SWELLING [None]
  - FACE INJURY [None]
  - PAIN [None]
  - SCAR [None]
  - SKIN BURNING SENSATION [None]
  - STRESS [None]
  - SWELLING [None]
